FAERS Safety Report 21811558 (Version 3)
Quarter: 2023Q1

REPORT INFORMATION
  Report Type: Report from Study
  Country: US (occurrence: US)
  Receive Date: 20230103
  Receipt Date: 20230202
  Transmission Date: 20230417
  Serious: Yes (Death, Hospitalization)
  Sender: FDA-Public Use
  Company Number: US-GILEAD-2022-0610240

PATIENT
  Age: 74 Year
  Sex: Male
  Weight: 132 kg

DRUGS (35)
  1. AXICABTAGENE CILOLEUCEL [Suspect]
     Active Substance: AXICABTAGENE CILOLEUCEL
     Indication: B-cell lymphoma
     Dosage: 68
     Route: 042
     Dates: start: 20221214, end: 20221214
  2. CYCLOPHOSPHAMIDE [Suspect]
     Active Substance: CYCLOPHOSPHAMIDE
     Indication: Bone marrow conditioning regimen
     Dosage: ^500^
     Route: 065
     Dates: start: 20221207, end: 20221209
  3. FLUDARABINE [Suspect]
     Active Substance: FLUDARABINE PHOSPHATE
     Indication: Bone marrow conditioning regimen
     Dosage: ^30^
     Route: 065
     Dates: start: 20221207, end: 20221209
  4. VITAMINS [Concomitant]
     Active Substance: VITAMINS
     Dosage: 1,OTHER,DAILY
     Route: 048
     Dates: start: 2002
  5. ASPIRIN [Concomitant]
     Active Substance: ASPIRIN
     Dosage: 81,MG,DAILY
     Route: 048
     Dates: start: 2007
  6. SINGULAIR [Concomitant]
     Active Substance: MONTELUKAST SODIUM
     Dosage: 10,MG,DAILY
     Route: 048
     Dates: start: 2007
  7. SALSALATE [Concomitant]
     Active Substance: SALSALATE
     Dosage: 1000,MG,DAILY
     Route: 048
     Dates: start: 2007
  8. VITAMIN D3 [Concomitant]
     Active Substance: CHOLECALCIFEROL
     Dosage: 100,UG,DAILY
     Route: 048
     Dates: start: 2012
  9. CALCIPOTRIENE [Concomitant]
     Active Substance: CALCIPOTRIENE
     Dosage: UNK,OTHER,TWICE DAILY (0.005%)
     Route: 061
     Dates: start: 2012
  10. HALOBETASOL PROPIONATE [Concomitant]
     Active Substance: HALOBETASOL PROPIONATE
     Dosage: UNK,OTHER,TWICE DAILY (0.05%)
     Route: 061
     Dates: start: 2012
  11. ATORVASTATIN [Concomitant]
     Active Substance: ATORVASTATIN
     Dosage: 10,MG,DAILY
     Route: 048
     Dates: start: 2012
  12. GARLIC NATURAL [Concomitant]
     Dosage: 1000,MG,TWICE DAILY
     Route: 048
     Dates: start: 2012
  13. AZELASTINE [Concomitant]
     Active Substance: AZELASTINE
     Dosage: 205.5,UG,TWICE DAILY
     Route: 045
     Dates: start: 2012
  14. FISH OIL [Concomitant]
     Active Substance: FISH OIL
     Dosage: 1000,MG,TWICE DAILY
     Route: 048
     Dates: start: 2012
  15. FLUTICASONE PROPIONATE [Concomitant]
     Active Substance: FLUTICASONE PROPIONATE
     Dosage: 50,UG,TWICE DAILY
     Route: 045
     Dates: start: 2012
  16. DILTIAZEM [Concomitant]
     Active Substance: DILTIAZEM
     Dosage: 240,MG,DAILY
     Route: 048
     Dates: start: 2012
  17. GLIPIZIDE [Concomitant]
     Active Substance: GLIPIZIDE
     Dosage: 5,MG,TWICE DAILY
     Route: 048
     Dates: start: 2012
  18. LOSARTAN [Concomitant]
     Active Substance: LOSARTAN
     Dosage: 100,MG,DAILY
     Route: 048
     Dates: start: 2012
  19. METFORMIN [Concomitant]
     Active Substance: METFORMIN HYDROCHLORIDE
     Dosage: 1000,MG,TWICE DAILY
     Route: 048
     Dates: start: 2012
  20. CHLORTHALIDONE [Concomitant]
     Active Substance: CHLORTHALIDONE
     Dosage: 25,MG,DAILY
     Route: 048
     Dates: start: 2014
  21. PIOGLITAZONE [Concomitant]
     Active Substance: PIOGLITAZONE
     Dosage: 45,MG,DAILY
     Route: 048
     Dates: start: 2017
  22. SILVER SULFADIAZINE [Concomitant]
     Active Substance: SILVER SULFADIAZINE
     Dosage: UNK,OTHER,DAILY (1%)
     Route: 061
     Dates: start: 2017
  23. TURMERIC [Concomitant]
     Active Substance: TURMERIC
     Dosage: 400,MG,DAILY
     Route: 048
     Dates: start: 2017
  24. CETIRIZINE [Concomitant]
     Active Substance: CETIRIZINE HYDROCHLORIDE
     Dosage: 10,MG,DAILY
     Route: 048
     Dates: start: 2017
  25. CETIRIZINE [Concomitant]
     Active Substance: CETIRIZINE HYDROCHLORIDE
     Dosage: 10,MG,DAILY
     Route: 048
     Dates: start: 2007
  26. MAGNESIUM [Concomitant]
     Active Substance: MAGNESIUM
     Dosage: 250,MG,DAILY
     Route: 048
     Dates: start: 202010
  27. VALACYCLOVIR [Concomitant]
     Active Substance: VALACYCLOVIR HYDROCHLORIDE
     Dosage: 500,MG,DAILY
     Route: 048
     Dates: start: 202011
  28. PREDNISOLONE ACETATE [Concomitant]
     Active Substance: PREDNISOLONE ACETATE
     Dosage: 1,OTHER,DAILY (1%)
     Route: 050
     Dates: start: 202011
  29. OXYCODONE [Concomitant]
     Active Substance: OXYCODONE
     Dosage: 325,MG,AS NECESSARY
     Route: 048
     Dates: start: 20221103
  30. GAS-X [Concomitant]
     Active Substance: DIMETHICONE
     Dosage: UNK,OTHER,AS NECESSARY
     Route: 048
     Dates: start: 20221103
  31. MIRALAX [Concomitant]
     Active Substance: POLYETHYLENE GLYCOL 3350
     Dosage: 17,G,AS NECESSARY
     Route: 048
     Dates: start: 20221103
  32. BISACODYL [Concomitant]
     Active Substance: BISACODYL
     Dosage: 5,MG,AS NECESSARY
     Route: 048
     Dates: start: 20221103
  33. PREDNISONE [Concomitant]
     Active Substance: PREDNISONE
     Dosage: 50,MG,TWICE DAILY
     Route: 048
     Dates: start: 20221115, end: 20221119
  34. PREDNISONE [Concomitant]
     Active Substance: PREDNISONE
     Dosage: 100,MG,DAILY
     Route: 048
     Dates: start: 20221122, end: 20221128
  35. REGLAN [Concomitant]
     Active Substance: METOCLOPRAMIDE HYDROCHLORIDE
     Indication: Large intestine perforation
     Dosage: 10 MG, TID
     Route: 042
     Dates: start: 20221223

REACTIONS (3)
  - Arrhythmia [Not Recovered/Not Resolved]
  - Large intestine perforation [Recovered/Resolved]
  - Large intestine perforation [Fatal]

NARRATIVE: CASE EVENT DATE: 20221215
